FAERS Safety Report 17195502 (Version 1)
Quarter: 2019Q4

REPORT INFORMATION
  Report Type: Spontaneous
  Country: SE (occurrence: SE)
  Receive Date: 20191224
  Receipt Date: 20191224
  Transmission Date: 20200122
  Serious: Yes (Hospitalization)
  Sender: FDA-Public Use
  Company Number: SE-TEVA-2019-SE-1155942

PATIENT
  Age: 62 Year
  Sex: Male

DRUGS (4)
  1. TROMBYL [Suspect]
     Active Substance: ASPIRIN
     Route: 048
     Dates: start: 20180512, end: 20180512
  2. IMDUR [Suspect]
     Active Substance: ISOSORBIDE MONONITRATE
     Route: 048
     Dates: start: 20180512, end: 20180512
  3. PROPAVAN [Suspect]
     Active Substance: PROPIOMAZINE
     Dosage: 2650 MG
     Route: 048
     Dates: start: 20180512, end: 20180512
  4. METOPROLOL. [Suspect]
     Active Substance: METOPROLOL
     Route: 048
     Dates: start: 20180512, end: 20180512

REACTIONS (3)
  - Intentional self-injury [Unknown]
  - Intentional overdose [Unknown]
  - Depressed level of consciousness [Unknown]

NARRATIVE: CASE EVENT DATE: 20180512
